FAERS Safety Report 21477514 (Version 2)
Quarter: 2022Q4

REPORT INFORMATION
  Report Type: Spontaneous
  Country: US (occurrence: US)
  Receive Date: 20221019
  Receipt Date: 20221102
  Transmission Date: 20230113
  Serious: Yes (Death, Hospitalization)
  Sender: FDA-Public Use
  Company Number: US-NOVARTISPH-NVSC2022US234526

PATIENT
  Sex: Male
  Weight: 68.2 kg

DRUGS (1)
  1. PLUVICTO [Suspect]
     Active Substance: LUTETIUM LU-177 VIPIVOTIDE TETRAXETAN
     Indication: Prostate cancer metastatic
     Dosage: 200 MCI
     Route: 042
     Dates: start: 20221006, end: 20221006

REACTIONS (4)
  - Cardiac failure congestive [Fatal]
  - Atrial fibrillation [Fatal]
  - Hypercalcaemia [Fatal]
  - Subdural haematoma [Not Recovered/Not Resolved]
